FAERS Safety Report 5802081-7 (Version None)
Quarter: 2008Q3

REPORT INFORMATION
  Report Type: 
  Country: None (occurrence: None)
  Receive Date: 20080707
  Receipt Date: 20080625
  Transmission Date: 20090109
  Serious: Yes (Other)
  Sender: FDA-Public Use
  Company Number: PHEH2008US05744

PATIENT
  Sex: Male

DRUGS (1)
  1. DIOVAN [Suspect]

REACTIONS (3)
  - ARTHRALGIA [None]
  - MOBILITY DECREASED [None]
  - POLYARTHRITIS [None]
